FAERS Safety Report 4440659-6 (Version None)
Quarter: 2004Q3

REPORT INFORMATION
  Report Type: 
  Country: None (occurrence: None)
  Receive Date: 20040901
  Receipt Date: 20040901
  Transmission Date: 20050211
  Serious: Yes (Hospitalization)
  Sender: FDA-Public Use
  Company Number: None

PATIENT
  Sex: Female
  Weight: 69.8539 kg

DRUGS (6)
  1. GLUCOTROL [Suspect]
     Indication: DIABETES MELLITUS
     Dosage: PO [PRIOR TO ADMISSION]
     Route: 048
  2. REMERON [Concomitant]
  3. PROZAC [Concomitant]
  4. RISPERDAL [Concomitant]
  5. ADVAIR DISKUS 100/50 [Concomitant]
  6. XANAX [Concomitant]

REACTIONS (3)
  - ASTHENIA [None]
  - BLOOD GLUCOSE INCREASED [None]
  - DIZZINESS [None]
